FAERS Safety Report 20096062 (Version 1)
Quarter: 2021Q4

REPORT INFORMATION
  Report Type: Spontaneous
  Country: US (occurrence: None)
  Receive Date: 20211120
  Receipt Date: 20211120
  Transmission Date: 20220303
  Serious: Yes (Other)
  Sender: FDA-Public Use
  Company Number: None

PATIENT
  Age: 65 Year
  Sex: Female
  Weight: 65 kg

DRUGS (7)
  1. CASIRIVIMAB\IMDEVIMAB [Suspect]
     Active Substance: CASIRIVIMAB\IMDEVIMAB
     Indication: COVID-19
     Dosage: OTHER FREQUENCY : ONCE;?
     Route: 042
     Dates: start: 20211116, end: 20211116
  2. ASPIRIN [Concomitant]
     Active Substance: ASPIRIN
  3. CALCIUM CITRATE\VITAMIN D [Concomitant]
     Active Substance: CALCIUM CITRATE\VITAMIN D
  4. CLOBETASOL [Concomitant]
     Active Substance: CLOBETASOL
  5. ESTRADIOL [Concomitant]
     Active Substance: ESTRADIOL
  6. LISINOPRIL [Concomitant]
     Active Substance: LISINOPRIL
  7. OXYBUTYNIN [Concomitant]
     Active Substance: OXYBUTYNIN

REACTIONS (6)
  - Pallor [None]
  - Dizziness [None]
  - Nausea [None]
  - Hypotension [None]
  - Heart rate decreased [None]
  - Infusion related reaction [None]

NARRATIVE: CASE EVENT DATE: 20211116
